FAERS Safety Report 12964729 (Version 5)
Quarter: 2018Q1

REPORT INFORMATION
  Report Type: Spontaneous
  Country: US (occurrence: US)
  Receive Date: 20161122
  Receipt Date: 20180315
  Transmission Date: 20180508
  Serious: Yes (Hospitalization, Other)
  Sender: FDA-Public Use
  Company Number: US-009507513-1611USA003400

PATIENT
  Age: 70 Year
  Sex: Male

DRUGS (7)
  1. ZEPATIER [Suspect]
     Active Substance: ELBASVIR\GRAZOPREVIR
     Indication: HEPATITIS C
     Dosage: 50-100 MG, TAKE 1 TABLET BY MOUTH DAILY
     Route: 048
     Dates: start: 20161028
  2. REBETOL [Suspect]
     Active Substance: RIBAVIRIN
     Indication: HEPATITIS C
     Dosage: UNK
     Route: 048
     Dates: start: 20161028
  3. CALCITRIOL. [Concomitant]
     Active Substance: CALCITRIOL
     Dosage: UNK
     Route: 048
  4. ORACIT [Concomitant]
     Active Substance: CITRIC ACID, 1-STEARYL ESTER\SODIUM CITRATE
     Dosage: UNK
     Route: 048
  5. OMEPRAZOLE. [Concomitant]
     Active Substance: OMEPRAZOLE
     Dosage: UNK
     Route: 048
  6. FERRIC SULFATE [Concomitant]
     Active Substance: FERRIC SULFATE
     Dosage: UNK
     Route: 048
  7. GLIMEPIRIDE. [Concomitant]
     Active Substance: GLIMEPIRIDE
     Dosage: UNK
     Route: 048

REACTIONS (8)
  - Pneumonia [Not Recovered/Not Resolved]
  - Fatigue [Unknown]
  - Blood count abnormal [Unknown]
  - Nausea [Not Recovered/Not Resolved]
  - Headache [Unknown]
  - Vomiting [Not Recovered/Not Resolved]
  - General physical condition abnormal [Unknown]
  - Thrombotic thrombocytopenic purpura [Unknown]

NARRATIVE: CASE EVENT DATE: 2016
